FAERS Safety Report 23950367 (Version 2)
Quarter: 2024Q3

REPORT INFORMATION
  Report Type: Spontaneous
  Country: IT (occurrence: IT)
  Receive Date: 20240607
  Receipt Date: 20240723
  Transmission Date: 20241017
  Serious: Yes (Other)
  Sender: NOVARTIS
  Company Number: None

PATIENT
  Age: 60 Year
  Sex: Female

DRUGS (1)
  1. GILENYA [Suspect]
     Active Substance: FINGOLIMOD HYDROCHLORIDE
     Indication: Relapsing-remitting multiple sclerosis
     Dosage: 0.5 MG, (1 CP/DIE)
     Route: 048
     Dates: start: 20120410, end: 20240318

REACTIONS (2)
  - Dermatitis bullous [Recovered/Resolved]
  - Papule [Unknown]

NARRATIVE: CASE EVENT DATE: 20240201
